FAERS Safety Report 15686736 (Version 1)
Quarter: 2018Q4

REPORT INFORMATION
  Report Type: Spontaneous
  Country: US (occurrence: US)
  Receive Date: 20181204
  Receipt Date: 20181204
  Transmission Date: 20190205
  Serious: Yes (Death)
  Sender: FDA-Public Use
  Company Number: US-UNITED THERAPEUTICS-UNT-2018-019733

PATIENT
  Age: 26 Year
  Sex: Male

DRUGS (1)
  1. REMODULIN [Suspect]
     Active Substance: TREPROSTINIL
     Indication: DOWLING-DEGOS DISEASE
     Route: 058

REACTIONS (3)
  - Pleural fibrosis [Fatal]
  - Pericardial fibrosis [Fatal]
  - Off label use [Unknown]
